FAERS Safety Report 5960108-6 (Version None)
Quarter: 2008Q4

REPORT INFORMATION
  Report Type: 
  Country: None (occurrence: None)
  Receive Date: 20081118
  Receipt Date: 20081118
  Transmission Date: 20090506
  Serious: Yes (Other)
  Sender: FDA-Public Use
  Company Number: None

PATIENT
  Sex: Female
  Weight: 58.0604 kg

DRUGS (1)
  1. COLD-EEZE 13.3MG QUIGLEY [Suspect]
     Indication: NASOPHARYNGITIS
     Dosage: 1 LOZENGE 2-4 HOURS PO
     Route: 048
     Dates: start: 20081113, end: 20081114

REACTIONS (2)
  - AGEUSIA [None]
  - MEDICATION ERROR [None]
